FAERS Safety Report 12710271 (Version 3)
Quarter: 2016Q4

REPORT INFORMATION
  Report Type: Spontaneous
  Country: US (occurrence: US)
  Receive Date: 20160902
  Receipt Date: 20161018
  Transmission Date: 20170207
  Serious: Yes (Other)
  Sender: FDA-Public Use
  Company Number: US-NOVEN PHARMACEUTICALS, INC.-US2016002157

PATIENT

DRUGS (2)
  1. OMEGA 3 [Concomitant]
     Active Substance: OMEGA-3 FATTY ACIDS
  2. DAYTRANA [Suspect]
     Active Substance: METHYLPHENIDATE
     Indication: NERVOUS SYSTEM DISORDER
     Dosage: 10 MG, UNKNOWN
     Route: 062
     Dates: start: 201512

REACTIONS (3)
  - Drug ineffective [Unknown]
  - Amnesia [Unknown]
  - Off label use [Unknown]

NARRATIVE: CASE EVENT DATE: 201512
